FAERS Safety Report 10010265 (Version 4)
Quarter: 2014Q4

REPORT INFORMATION
  Report Type: Spontaneous
  Country: IT (occurrence: IT)
  Receive Date: 20140314
  Receipt Date: 20141118
  Transmission Date: 20150528
  Serious: Yes (Other)
  Sender: FDA-Public Use
  Company Number: IT-009507513-1403ITA004888

PATIENT
  Age: 56 Year
  Sex: Male
  Weight: 80 kg

DRUGS (4)
  1. COPEGUS [Interacting]
     Active Substance: RIBAVIRIN
     Dosage: DOSE REDUCED 3 TABLETS (600MG), DAILY
     Route: 048
     Dates: start: 20130806
  2. PEGASYS [Interacting]
     Active Substance: PEGINTERFERON ALFA-2A
     Indication: ANTIVIRAL TREATMENT
     Dosage: 180 MICROGRAM, QW
     Route: 058
     Dates: start: 20130426
  3. VICTRELIS [Suspect]
     Active Substance: BOCEPREVIR
     Indication: ANTIVIRAL TREATMENT
     Dosage: 800 MG (4 CAPSULES), TID
     Route: 048
     Dates: start: 20130527, end: 20140106
  4. COPEGUS [Interacting]
     Active Substance: RIBAVIRIN
     Indication: ANTIVIRAL TREATMENT
     Dosage: 6 TABLETS (1200MG), QD
     Route: 048
     Dates: start: 20130426, end: 20130805

REACTIONS (2)
  - Pancytopenia [Recovering/Resolving]
  - Drug interaction [Unknown]

NARRATIVE: CASE EVENT DATE: 20130806
